FAERS Safety Report 8048772-1 (Version None)
Quarter: 2012Q1

REPORT INFORMATION
  Report Type: 
  Country: None (occurrence: None)
  Receive Date: 20120117
  Receipt Date: 20120109
  Transmission Date: 20120608
  Serious: Yes (Hospitalization, Other)
  Sender: FDA-Public Use
  Company Number: US-US-EMD SERONO, INC.-7003178

PATIENT
  Sex: Female
  Weight: 114 kg

DRUGS (13)
  1. LEVOTHYROXINE SODIUM [Concomitant]
  2. ZOLOFT [Concomitant]
  3. REBIF [Suspect]
     Indication: MULTIPLE SCLEROSIS
     Route: 058
     Dates: start: 20080701
  4. AMPYRA [Concomitant]
     Indication: GAIT DISTURBANCE
  5. ACETYLSALICYLIC ACID SRT [Concomitant]
  6. GABAPENTIN [Concomitant]
  7. METFORMIN HCL [Concomitant]
  8. AMITRIPTYLINE HCL [Concomitant]
  9. METOPROLOL TARTRATE [Concomitant]
  10. INSULIN [Concomitant]
  11. OXYBUTININ [Concomitant]
  12. ALBUTEROL [Concomitant]
  13. SIMVASTATIN [Concomitant]

REACTIONS (4)
  - CONVULSION [None]
  - CARDIAC FAILURE CONGESTIVE [None]
  - CARDIOMYOPATHY [None]
  - PNEUMONIA [None]
